FAERS Safety Report 6721795-8 (Version None)
Quarter: 2010Q2

REPORT INFORMATION
  Report Type: 
  Country: None (occurrence: None)
  Receive Date: 20100512
  Receipt Date: 20100505
  Transmission Date: 20101027
  Serious: Yes (Other)
  Sender: FDA-Public Use
  Company Number: GB-ROCHE-701372

PATIENT
  Sex: Male

DRUGS (1)
  1. AVASTIN [Suspect]
     Route: 065

REACTIONS (1)
  - PORTAL HYPERTENSION [None]
